FAERS Safety Report 5373394-0 (Version None)
Quarter: 2007Q2

REPORT INFORMATION
  Report Type: 
  Country: None (occurrence: None)
  Receive Date: 20070626
  Receipt Date: 20070626
  Transmission Date: 20071010
  Serious: Yes (Other)
  Sender: FDA-Public Use
  Company Number: None

PATIENT
  Sex: Male
  Weight: 106 kg

DRUGS (3)
  1. FENTANYL [Suspect]
     Indication: BACK PAIN
     Dosage: 50MCG Q72 HR TOPICAL
     Route: 061
     Dates: start: 20070413
  2. FENTANYL [Suspect]
     Indication: INTERVERTEBRAL DISC PROTRUSION
     Dosage: 50MCG Q72 HR TOPICAL
     Route: 061
     Dates: start: 20070413
  3. FENTANYL [Suspect]
     Indication: LUMBAR SPINAL STENOSIS
     Dosage: 50MCG Q72 HR TOPICAL
     Route: 061
     Dates: start: 20070413

REACTIONS (1)
  - DRUG EFFECT DECREASED [None]
